FAERS Safety Report 9503046 (Version 2)
Quarter: 2013Q3

REPORT INFORMATION
  Report Type: Report from Study
  Country: DE (occurrence: DE)
  Receive Date: 20130906
  Receipt Date: 20130906
  Transmission Date: 20140515
  Serious: Yes (Death)
  Sender: FDA-Public Use
  Company Number: PHHY2012DE128220

PATIENT
  Age: 76 Year
  Sex: Male

DRUGS (3)
  1. EXELON PATCH [Suspect]
     Dosage: 4.6 MG, DAILY (4.6 MG/24 HOURS)
     Route: 062
  2. EXELON PATCH [Suspect]
     Dosage: 9.5 MG, DAILY (9.5MG/24 HOURS)
     Route: 062
  3. EXELON PATCH [Suspect]
     Dosage: 4.6 MG, DAILY (4.6 MG/24 HOURS)
     Route: 062

REACTIONS (6)
  - Hypophagia [Fatal]
  - Cachexia [Fatal]
  - Delusion [Unknown]
  - Cough [Unknown]
  - Nasopharyngitis [Unknown]
  - Restlessness [Unknown]
